FAERS Safety Report 4750493-5 (Version None)
Quarter: 2005Q3

REPORT INFORMATION
  Report Type: 
  Country: None (occurrence: None)
  Receive Date: 20050823
  Receipt Date: 20050815
  Transmission Date: 20060218
  Serious: Yes (Hospitalization)
  Sender: FDA-Public Use
  Company Number: AU-GLAXOSMITHKLINE-B0391276A

PATIENT
  Age: 13 Year
  Sex: Female

DRUGS (7)
  1. CEFTAZIDIME [Suspect]
     Indication: STAPHYLOCOCCAL INFECTION
     Dosage: 500MG FOUR TIMES PER DAY
     Route: 042
  2. GENTAMICIN [Suspect]
     Dosage: 10MGK PER DAY
     Route: 042
  3. FLUCLOXACILLIN [Concomitant]
     Route: 048
  4. PROBENECID [Concomitant]
     Route: 065
  5. ALBUTEROL SULFATE HFA [Concomitant]
     Route: 055
  6. FLUTICASONE [Concomitant]
     Route: 065
  7. TOBRAMYCIN [Concomitant]
     Route: 042

REACTIONS (10)
  - BLOOD CREATININE INCREASED [None]
  - BLOOD PRESSURE DIASTOLIC DECREASED [None]
  - DRUG INTERACTION [None]
  - DRUG LEVEL INCREASED [None]
  - DRUG TOXICITY [None]
  - HAEMODIALYSIS [None]
  - NEPHRITIS INTERSTITIAL [None]
  - PROTEINURIA [None]
  - RENAL FAILURE [None]
  - RENAL TUBULAR NECROSIS [None]
